FAERS Safety Report 4967583-4 (Version None)
Quarter: 2006Q2

REPORT INFORMATION
  Report Type: 
  Country: None (occurrence: None)
  Receive Date: 20060404
  Receipt Date: 20060322
  Transmission Date: 20061013
  Serious: Yes (Hospitalization)
  Sender: FDA-Public Use
  Company Number: GXKR2006TR01741

PATIENT
  Age: 5 Year
  Sex: Female

DRUGS (2)
  1. CEFTRIAXONE [Suspect]
     Indication: PNEUMONIA
  2. AMPICILLIN AND SULBACTAM [Suspect]
     Indication: PNEUMONIA

REACTIONS (28)
  - ANAEMIA HAEMOLYTIC AUTOIMMUNE [None]
  - BLOOD BILIRUBIN INCREASED [None]
  - BLOOD CREATININE INCREASED [None]
  - BLOOD LACTATE DEHYDROGENASE INCREASED [None]
  - BLOOD PHOSPHORUS INCREASED [None]
  - BLOOD SMEAR TEST ABNORMAL [None]
  - BLOOD UREA INCREASED [None]
  - BLOOD URIC ACID INCREASED [None]
  - CREATINE PHOSPHOKINASE DECREASED [None]
  - DRUG SPECIFIC ANTIBODY PRESENT [None]
  - HAEMATOCRIT DECREASED [None]
  - HAEMOGLOBIN DECREASED [None]
  - HAEMOLYSIS [None]
  - HAEMOLYTIC ANAEMIA [None]
  - HYPERKALAEMIA [None]
  - KIDNEY ENLARGEMENT [None]
  - LABORATORY TEST ABNORMAL [None]
  - LEUKOCYTURIA [None]
  - LOCALISED OEDEMA [None]
  - MALAISE [None]
  - NEPHRITIS INTERSTITIAL [None]
  - OEDEMA PERIPHERAL [None]
  - OLIGURIA [None]
  - PALLOR [None]
  - PERITONEAL DIALYSIS [None]
  - RED BLOOD CELL SEDIMENTATION RATE INCREASED [None]
  - RED BLOOD CELLS URINE POSITIVE [None]
  - RENAL FAILURE ACUTE [None]
